FAERS Safety Report 25948043 (Version 1)
Quarter: 2025Q4

REPORT INFORMATION
  Report Type: Spontaneous
  Country: AU (occurrence: AU)
  Receive Date: 20251022
  Receipt Date: 20251022
  Transmission Date: 20260117
  Serious: Yes (Life-Threatening, Hospitalization, Other)
  Sender: SANDOZ
  Company Number: AU-PFIZER INC-PV202500103229

PATIENT
  Age: 24 Year
  Sex: Male

DRUGS (22)
  1. BACLOFEN [Suspect]
     Active Substance: BACLOFEN
     Indication: Alcoholism
     Dosage: 15 MG, QD
     Route: 048
  2. BACLOFEN [Suspect]
     Active Substance: BACLOFEN
     Dosage: 30 MG, QD
     Route: 048
  3. BACLOFEN [Suspect]
     Active Substance: BACLOFEN
     Dosage: 600 MG
     Route: 048
  4. BACLOFEN [Suspect]
     Active Substance: BACLOFEN
     Dosage: UNK
     Route: 048
  5. BACLOFEN [Suspect]
     Active Substance: BACLOFEN
     Dosage: UNK
     Route: 048
  6. DEXMEDETOMIDINE HYDROCHLORIDE [Suspect]
     Active Substance: DEXMEDETOMIDINE HYDROCHLORIDE
     Indication: Delirium
     Dosage: 1.5 MICROGRAM(S)/KILOGRAM; DOSE FORM: INFUSION; INTERVAL: 1 HOUR
     Route: 042
  7. DEXMEDETOMIDINE HYDROCHLORIDE [Suspect]
     Active Substance: DEXMEDETOMIDINE HYDROCHLORIDE
     Indication: Agitation
     Dosage: UNK
     Route: 042
  8. DEXMEDETOMIDINE HYDROCHLORIDE [Suspect]
     Active Substance: DEXMEDETOMIDINE HYDROCHLORIDE
     Indication: Sedation
     Dosage: UNK
     Route: 042
  9. ESCITALOPRAM OXALATE [Suspect]
     Active Substance: ESCITALOPRAM OXALATE
     Dosage: 160 MG
     Route: 048
  10. ESCITALOPRAM OXALATE [Suspect]
     Active Substance: ESCITALOPRAM OXALATE
     Indication: Alcoholism
     Dosage: 20 MG, QD
     Route: 048
  11. ESCITALOPRAM OXALATE [Suspect]
     Active Substance: ESCITALOPRAM OXALATE
     Dosage: UNK
     Route: 048
  12. HALOPERIDOL [Suspect]
     Active Substance: HALOPERIDOL
     Indication: Agitation
     Dosage: UNK
     Route: 065
  13. HALOPERIDOL [Suspect]
     Active Substance: HALOPERIDOL
     Indication: Delirium
     Dosage: UNK
     Route: 065
  14. MIDAZOLAM HYDROCHLORIDE [Suspect]
     Active Substance: MIDAZOLAM HYDROCHLORIDE
     Indication: Agitation
     Dosage: UNK
     Route: 040
  15. MIDAZOLAM HYDROCHLORIDE [Suspect]
     Active Substance: MIDAZOLAM HYDROCHLORIDE
     Indication: Delirium
     Dosage: UNK
     Route: 065
  16. EPINEPHRINE [Concomitant]
     Active Substance: EPINEPHRINE
     Indication: Hypotension
     Dosage: 2 MCG/MIN ( 2 MICROGRAM; DOSE FORM: INJECTION; INTERVAL: 1 MINUTE)
     Route: 065
  17. EPINEPHRINE [Concomitant]
     Active Substance: EPINEPHRINE
     Indication: Bradyarrhythmia
     Dosage: UNK,  INTRAVENOUS INFUSION
     Route: 042
  18. EPINEPHRINE [Concomitant]
     Active Substance: EPINEPHRINE
     Indication: Cardiac output decreased
  19. ATROPINE [Concomitant]
     Active Substance: ATROPINE
     Indication: Bradyarrhythmia
     Dosage: 1200 UG
     Route: 040
  20. ATROPINE [Concomitant]
     Active Substance: ATROPINE
     Dosage: 600 MG
     Route: 065
  21. FENTANYL [Concomitant]
     Active Substance: FENTANYL
     Indication: Sedation
     Dosage: UNK
     Route: 042
  22. PROPOFOL [Concomitant]
     Active Substance: PROPOFOL
     Indication: Sedation
     Dosage: UNK
     Route: 042

REACTIONS (13)
  - Hypotension [Recovered/Resolved]
  - Bradyarrhythmia [Recovered/Resolved]
  - Cardiac output decreased [Unknown]
  - Drug withdrawal syndrome [Unknown]
  - Mental status changes [Recovered/Resolved]
  - Toxicity to various agents [Unknown]
  - Intentional overdose [Unknown]
  - Drug ineffective [Unknown]
  - Agitation [Unknown]
  - Cardiac arrest [Unknown]
  - Delirium [Unknown]
  - Therapy non-responder [Unknown]
  - Off label use [Unknown]
